FAERS Safety Report 12461037 (Version 1)
Quarter: 2016Q2

REPORT INFORMATION
  Report Type: Spontaneous
  Country: US (occurrence: US)
  Receive Date: 20160613
  Receipt Date: 20160613
  Transmission Date: 20160815
  Serious: No
  Sender: FDA-Public Use
  Company Number: US-ALLERGAN-1523497US

PATIENT
  Age: 38 Year
  Sex: Male

DRUGS (2)
  1. LIDOCAINE HCL [Concomitant]
     Active Substance: LIDOCAINE HYDROCHLORIDE
     Indication: ANAESTHESIA
     Dosage: UNK
     Dates: start: 20150808, end: 20150808
  2. KYBELLA [Suspect]
     Active Substance: DEOXYCHOLIC ACID
     Indication: FAT TISSUE INCREASED
     Dosage: 5 CC, ONE TIME DOSE
     Route: 058
     Dates: start: 20150808, end: 20150808

REACTIONS (1)
  - Application site alopecia [Not Recovered/Not Resolved]

NARRATIVE: CASE EVENT DATE: 20150824
